FAERS Safety Report 22185369 (Version 3)
Quarter: 2024Q4

REPORT INFORMATION
  Report Type: Report from Study
  Country: CA (occurrence: CA)
  Receive Date: 20230407
  Receipt Date: 20241204
  Transmission Date: 20250115
  Serious: Yes (Disabling, Other)
  Sender: SAMSUNG BIOEPIS
  Company Number: CA-SAMSUNG BIOEPIS-SB-2023-09134

PATIENT
  Age: 44 Year
  Sex: Female

DRUGS (2)
  1. ETANERCEPT [Suspect]
     Active Substance: ETANERCEPT
     Indication: Wagner^s disease
     Dosage: 50 MG/ML;
     Route: 065
     Dates: start: 20171026
  2. NALTREXONE [Concomitant]
     Active Substance: NALTREXONE
     Indication: Product used for unknown indication

REACTIONS (8)
  - Post-acute COVID-19 syndrome [Recovering/Resolving]
  - Pneumonia [Unknown]
  - Disability [Unknown]
  - Autoimmune disorder [Unknown]
  - Nasopharyngitis [Unknown]
  - Nerve block [Unknown]
  - Off label use [Unknown]
  - Impaired work ability [Unknown]

NARRATIVE: CASE EVENT DATE: 20230101
